FAERS Safety Report 10055772 (Version 1)
Quarter: 2014Q2

REPORT INFORMATION
  Report Type: Spontaneous
  Country: US (occurrence: None)
  Receive Date: 20140402
  Receipt Date: 20140402
  Transmission Date: 20141212
  Serious: Yes (Other)
  Sender: FDA-Public Use
  Company Number: None

PATIENT
  Age: 45 Year
  Sex: Female
  Weight: 60 kg

DRUGS (9)
  1. VANCOMYCIN [Suspect]
     Indication: EVIDENCE BASED TREATMENT
     Dates: start: 20140316
  2. ZOSYN [Suspect]
     Dates: start: 20140315, end: 20140401
  3. PROPOFOL [Concomitant]
  4. LORAZEPAM [Concomitant]
  5. PANTOPRAZOLE [Concomitant]
  6. HYDROMORPHONE [Concomitant]
  7. HEPARIN [Concomitant]
  8. FENTANYL [Concomitant]
  9. DEXAMETHASONE [Concomitant]

REACTIONS (2)
  - Renal failure acute [None]
  - Drug interaction [None]
